FAERS Safety Report 18253110 (Version 2)
Quarter: 2020Q3

REPORT INFORMATION
  Report Type: Spontaneous
  Country: US (occurrence: US)
  Receive Date: 20200910
  Receipt Date: 20200928
  Transmission Date: 20201103
  Serious: No
  Sender: FDA-Public Use
  Company Number: US-AMGEN-USASP2020145067

PATIENT
  Age: 79 Year
  Sex: Female
  Weight: 91.61 kg

DRUGS (1)
  1. REPATHA [Suspect]
     Active Substance: EVOLOCUMAB
     Indication: BLOOD CHOLESTEROL ABNORMAL
     Dosage: UNK
     Route: 065
     Dates: start: 202008

REACTIONS (2)
  - Accidental exposure to product [Unknown]
  - Arthritis [Unknown]

NARRATIVE: CASE EVENT DATE: 20200904
